FAERS Safety Report 8996805 (Version 1)
Quarter: 2013Q1

REPORT INFORMATION
  Report Type: Spontaneous
  Country: US (occurrence: US)
  Receive Date: 20130104
  Receipt Date: 20130104
  Transmission Date: 20140127
  Serious: Yes (Other)
  Sender: FDA-Public Use
  Company Number: US-ELI_LILLY_AND_COMPANY-US201212008307

PATIENT
  Sex: Female

DRUGS (2)
  1. CYMBALTA [Suspect]
     Indication: DEPRESSION
     Dosage: 60 MG, UNKNOWN
     Dates: start: 20121210, end: 20121219
  2. CYMBALTA [Suspect]
     Dosage: 30 MG, UNKNOWN
     Dates: end: 20121223

REACTIONS (8)
  - Dyspnoea [Unknown]
  - Urinary retention [Unknown]
  - Bladder dilatation [Unknown]
  - Abasia [Unknown]
  - Malaise [Unknown]
  - Speech disorder [Unknown]
  - Dizziness [Unknown]
  - Intentional drug misuse [Unknown]
